FAERS Safety Report 4411397-0 (Version None)
Quarter: 2004Q2

REPORT INFORMATION
  Report Type: 
  Country: None (occurrence: None)
  Receive Date: 20040630
  Receipt Date: 20040429
  Transmission Date: 20050107
  Serious: No
  Sender: FDA-Public Use
  Company Number: 04P-163-0249886-00

PATIENT
  Age: 49 Year
  Sex: Female
  Weight: 61.2356 kg

DRUGS (5)
  1. HUMIRA [Suspect]
     Indication: RHEUMATOID ARTHRITIS
     Dosage: 40 MG, 1 IN 2 WK, SUBCUTANEOUS
     Route: 058
     Dates: start: 20031001, end: 20040201
  2. METHOTREXATE [Concomitant]
  3. FOLIC ACID [Concomitant]
  4. MELOXICAM [Concomitant]
  5. LEVOTHYROXINE SODIUM [Concomitant]

REACTIONS (3)
  - COUGH [None]
  - NASOPHARYNGITIS [None]
  - WHITE BLOOD CELL COUNT DECREASED [None]
